FAERS Safety Report 8612798-7 (Version None)
Quarter: 2012Q3

REPORT INFORMATION
  Report Type: 
  Country: None (occurrence: None)
  Receive Date: 20120822
  Receipt Date: 20111103
  Transmission Date: 20120928
  Serious: No
  Sender: FDA-Public Use
  Company Number: US-ASTRAZENECA-2009SE33021

PATIENT
  Age: 86 Year
  Sex: Male

DRUGS (1)
  1. SYMBICORT [Suspect]
     Dosage: 160 MCG,  BID
     Route: 055
     Dates: start: 20091103

REACTIONS (2)
  - DRUG DOSE OMISSION [None]
  - DYSSTASIA [None]
